FAERS Safety Report 6884936-8 (Version None)
Quarter: 2010Q3

REPORT INFORMATION
  Report Type: 
  Country: None (occurrence: None)
  Receive Date: 20100729
  Receipt Date: 20071008
  Transmission Date: 20110219
  Serious: Yes (Other)
  Sender: FDA-Public Use
  Company Number: US-PFIZER INC-2007083903

PATIENT
  Sex: Female
  Weight: 88.5 kg

DRUGS (4)
  1. CELEBREX [Suspect]
     Indication: BACK PAIN
     Dates: start: 20071007
  2. SYNTHROID [Concomitant]
     Indication: HYPOTHYROIDISM
  3. METROGEL [Concomitant]
  4. CONTRACEPTIVE, UNSPECIFIED [Concomitant]

REACTIONS (1)
  - RASH [None]
